FAERS Safety Report 18329686 (Version 1)
Quarter: 2020Q3

REPORT INFORMATION
  Report Type: Spontaneous
  Country: US (occurrence: US)
  Receive Date: 20200927
  Receipt Date: 20200927
  Transmission Date: 20201103
  Serious: Yes (Other)
  Sender: FDA-Public Use
  Company Number: None

PATIENT
  Age: 4 Decade
  Sex: Male

DRUGS (4)
  1. CHLOROQUINE. [Suspect]
     Active Substance: CHLOROQUINE
     Indication: COVID-19
     Route: 048
     Dates: start: 2020
  2. LOPINAVIR [Suspect]
     Active Substance: LOPINAVIR
     Indication: COVID-19
     Dosage: ?          OTHER DOSE:400?100MG;?
     Route: 048
     Dates: start: 2020
  3. CEFTRIAXONE. [Suspect]
     Active Substance: CEFTRIAXONE
     Indication: COVID-19
     Dates: start: 2020
  4. RITONAVIR. [Suspect]
     Active Substance: RITONAVIR
     Indication: COVID-19
     Dosage: DOSEL 400/100MG
     Dates: start: 2020

REACTIONS (3)
  - Toxicity to various agents [None]
  - Off label use [None]
  - Drug interaction [None]
